FAERS Safety Report 20107083 (Version 1)
Quarter: 2021Q4

REPORT INFORMATION
  Report Type: Spontaneous
  Country: US (occurrence: None)
  Receive Date: 20211123
  Receipt Date: 20211123
  Transmission Date: 20220304
  Serious: Yes (Hospitalization)
  Sender: FDA-Public Use
  Company Number: None

PATIENT
  Sex: Female

DRUGS (5)
  1. BEXAROTENE [Suspect]
     Active Substance: BEXAROTENE
     Indication: Cutaneous T-cell lymphoma
     Dosage: FREQUENCY : DAILY;?
     Route: 048
     Dates: start: 20180130
  2. BEXAROTENE [Concomitant]
     Active Substance: BEXAROTENE
  3. FENOFIBRATE CAP 200MG [Concomitant]
  4. SYNTHROID TAB 25MCG [Concomitant]
  5. ZYRTEC ALLGY CAP 10MG [Concomitant]

REACTIONS (1)
  - Therapy interrupted [None]
